FAERS Safety Report 6449035-8 (Version None)
Quarter: 2009Q4

REPORT INFORMATION
  Report Type: 
  Country: None (occurrence: None)
  Receive Date: 20091120
  Receipt Date: 20091120
  Transmission Date: 20100525
  Serious: Yes (Hospitalization, Other)
  Sender: FDA-Public Use
  Company Number: Z0002250A

PATIENT
  Sex: Female
  Weight: 68.5 kg

DRUGS (7)
  1. PAZOPANIB [Suspect]
     Dosage: 800MG PER DAY
     Route: 048
     Dates: start: 20091027
  2. FRAXIPARIN [Concomitant]
     Indication: THROMBOSIS
     Dosage: .6ML PER DAY
     Route: 058
     Dates: start: 20090902, end: 20091111
  3. LEVOTHYROXINE SODIUM [Concomitant]
     Indication: HYPOTHYROIDISM
     Dosage: 50MCG PER DAY
     Route: 048
  4. FEMOSTON [Concomitant]
     Indication: HORMONE REPLACEMENT THERAPY
     Dosage: 1MG WEEKLY
     Route: 048
  5. UNKNOWN MEDICATION [Concomitant]
     Indication: DRUG USE FOR UNKNOWN INDICATION
     Route: 048
  6. FRAGMIN [Concomitant]
     Indication: THROMBOSIS
     Dosage: 2500IU PER DAY
     Route: 058
     Dates: start: 20091112, end: 20091113
  7. PANTOPRAZOLE [Concomitant]
     Dosage: 20MG AT NIGHT
     Route: 048
     Dates: start: 20091114

REACTIONS (6)
  - ALANINE AMINOTRANSFERASE INCREASED [None]
  - ASPARTATE AMINOTRANSFERASE INCREASED [None]
  - BLOOD LACTATE DEHYDROGENASE INCREASED [None]
  - FATIGUE [None]
  - PYREXIA [None]
  - VOMITING [None]
